FAERS Safety Report 20005192 (Version 1)
Quarter: 2021Q4

REPORT INFORMATION
  Report Type: Report from Study
  Country: None (occurrence: US)
  Receive Date: 20211028
  Receipt Date: 20211028
  Transmission Date: 20220303
  Serious: Yes (Other)
  Sender: FDA-Public Use
  Company Number: US-ABBVIE-21K-163-4130835-00

PATIENT
  Age: 51 Year
  Sex: Female
  Weight: 77.18 kg

DRUGS (5)
  1. HUMIRA [Suspect]
     Active Substance: ADALIMUMAB
     Indication: Psoriatic arthropathy
     Route: 058
     Dates: start: 201108, end: 2014
  2. HUMIRA [Suspect]
     Active Substance: ADALIMUMAB
     Indication: Colitis ulcerative
     Route: 058
  3. HUMIRA [Suspect]
     Active Substance: ADALIMUMAB
     Indication: Psoriasis
  4. HERBALS [Concomitant]
     Active Substance: HERBALS
     Indication: COVID-19
  5. HERBALS [Concomitant]
     Active Substance: HERBALS
     Indication: Immunodeficiency

REACTIONS (20)
  - Skin induration [Unknown]
  - Mass [Unknown]
  - Surgery [Unknown]
  - Pain of skin [Unknown]
  - Malaise [Unknown]
  - Therapeutic response unexpected [Unknown]
  - Pre-existing condition improved [Unknown]
  - Extrasystoles [Unknown]
  - Feeling abnormal [Unknown]
  - Ophthalmic migraine [Recovered/Resolved]
  - Increased upper airway secretion [Recovered/Resolved]
  - Immune system disorder [Unknown]
  - Autoimmune disorder [Unknown]
  - Dyspepsia [Unknown]
  - Depression [Recovering/Resolving]
  - Anxiety [Recovered/Resolved]
  - Pain [Unknown]
  - Colitis ulcerative [Recovering/Resolving]
  - Psoriatic arthropathy [Unknown]
  - COVID-19 [Recovering/Resolving]

NARRATIVE: CASE EVENT DATE: 20140101
